FAERS Safety Report 8011377 (Version 5)
Quarter: 2012Q4

REPORT INFORMATION
  Report Type: 
  Country: US (occurrence: US)
  Receive Date: 20110627
  Receipt Date: 20121115
  Transmission Date: 20130627
  Serious: Yes (Hospitalization, Other)
  Sender: FDA-Public Use
  Company Number: US-ASTRAZENECA-2011SE37131

PATIENT
  Age: 478 Month
  Sex: Female
  Weight: 58.1 kg

DRUGS (12)
  1. SEROQUEL [Suspect]
     Indication: ANXIETY
     Dosage: 200 MG AT NIGHT AND 25 MG 4 TIMES A DAY
     Route: 048
     Dates: start: 2006
  2. SEROQUEL [Suspect]
     Indication: BIPOLAR DISORDER
     Dosage: 200 MG AT NIGHT AND 25 MG 4 TIMES A DAY
     Route: 048
     Dates: start: 2006
  3. SEROQUEL [Suspect]
     Indication: ANXIETY
     Route: 048
     Dates: start: 2008
  4. SEROQUEL [Suspect]
     Indication: BIPOLAR DISORDER
     Route: 048
     Dates: start: 2008
  5. SEROQUEL [Suspect]
     Indication: ANXIETY
     Route: 048
     Dates: start: 2011
  6. SEROQUEL [Suspect]
     Indication: BIPOLAR DISORDER
     Route: 048
     Dates: start: 2011
  7. SEROQUEL [Suspect]
     Indication: ANXIETY
     Route: 048
  8. SEROQUEL [Suspect]
     Indication: BIPOLAR DISORDER
     Route: 048
  9. ZESTRIL [Concomitant]
     Route: 048
  10. ZOLOFT [Concomitant]
  11. SIROCET [Concomitant]
     Indication: HEADACHE
     Dosage: EVERY 4 TO 6 HRS AS REQUIRED
  12. ALPRAZOLAM [Concomitant]
     Dosage: FOUR TIMES A DAY

REACTIONS (5)
  - Mental disorder [Unknown]
  - Nasopharyngitis [Unknown]
  - Histrionic personality disorder [Unknown]
  - Intentional drug misuse [Unknown]
  - Drug dose omission [Unknown]
